FAERS Safety Report 14524896 (Version 2)
Quarter: 2018Q1

REPORT INFORMATION
  Report Type: Spontaneous
  Country: US (occurrence: US)
  Receive Date: 20180213
  Receipt Date: 20180302
  Transmission Date: 20180509
  Serious: Yes (Hospitalization)
  Sender: FDA-Public Use
  Company Number: US-AUROBINDO-AUR-APL-2018-005271

PATIENT
  Age: 46 Year
  Sex: Female

DRUGS (5)
  1. HYDROXYCHLOROQUINE [Suspect]
     Active Substance: HYDROXYCHLOROQUINE
     Dosage: 4 DF, UNK
  2. ONDANSETRON [Interacting]
     Active Substance: ONDANSETRON
     Dosage: 4 MILLIGRAM
     Route: 042
  3. ACTIVATED CHARCOAL [Concomitant]
     Active Substance: ACTIVATED CHARCOAL
     Dosage: 50 GRAM
     Route: 048
  4. HYDROXYCHLOROQUINE 200MG TABLET [Interacting]
     Active Substance: HYDROXYCHLOROQUINE
     Dosage: IN TOTAL
     Route: 048
  5. ONDANSETRON [Suspect]
     Active Substance: ONDANSETRON
     Indication: PRODUCT USED FOR UNKNOWN INDICATION
     Dosage: 4 MG, UNK
     Route: 042

REACTIONS (12)
  - Ventricular arrhythmia [Recovered/Resolved]
  - Cardiotoxicity [None]
  - Hypotension [None]
  - Ventricular tachycardia [Unknown]
  - Torsade de pointes [Unknown]
  - Electrocardiogram QT prolonged [Unknown]
  - Ventricular extrasystoles [None]
  - Toxicity to various agents [None]
  - Drug interaction [Unknown]
  - Sinus tachycardia [None]
  - Hypokalaemia [None]
  - Incorrect dose administered [None]
